FAERS Safety Report 4385023-3 (Version None)
Quarter: 2004Q2

REPORT INFORMATION
  Report Type: 
  Country: None (occurrence: None)
  Receive Date: 20040625
  Receipt Date: 20040611
  Transmission Date: 20050107
  Serious: Yes (Life-Threatening, Hospitalization)
  Sender: FDA-Public Use
  Company Number: JUM

PATIENT
  Age: 48 Year
  Sex: Female

DRUGS (7)
  1. WELLVONE [Suspect]
     Dosage: 750MG PER DAY
     Dates: start: 19950420, end: 19950523
  2. LORATADINE [Concomitant]
     Route: 048
     Dates: end: 19950523
  3. PENTAMIDINE [Concomitant]
     Route: 048
     Dates: start: 19950328, end: 19950417
  4. METACYCLINE CHLORHYDRATE [Concomitant]
     Route: 048
     Dates: start: 19950328, end: 19950427
  5. HEPACLEM [Concomitant]
     Indication: NAUSEA
     Route: 048
     Dates: start: 19950420, end: 19950423
  6. ODDIBIL [Concomitant]
     Indication: NAUSEA
     Route: 048
     Dates: start: 19950420, end: 19950423
  7. QUESTRAN [Concomitant]
     Route: 048
     Dates: start: 19950526, end: 19950602

REACTIONS (5)
  - BLOOD ALKALINE PHOSPHATASE INCREASED [None]
  - FIXED ERUPTION [None]
  - HEPATIC ENZYME INCREASED [None]
  - JAUNDICE [None]
  - RASH [None]
